FAERS Safety Report 5251355-X (Version None)
Quarter: 2007Q1

REPORT INFORMATION
  Report Type: 
  Country: None (occurrence: None)
  Receive Date: 20070228
  Receipt Date: 20060427
  Transmission Date: 20070707
  Serious: No
  Sender: FDA-Public Use
  Company Number: US-GLAXOSMITHKLINE-A0603527A

PATIENT
  Age: 70 Year
  Sex: Male

DRUGS (19)
  1. LAMICTAL [Suspect]
     Indication: BIPOLAR DISORDER
     Route: 048
     Dates: start: 20050101
  2. LITHOBID [Concomitant]
  3. ASCORBIC ACID [Concomitant]
  4. VITAMIN E [Concomitant]
  5. COENZYME Q10 [Concomitant]
  6. TOPROL-XL [Concomitant]
  7. FOLIC ACID [Concomitant]
  8. FISH OIL [Concomitant]
  9. VITAMIN [Concomitant]
  10. PLAVIX [Concomitant]
  11. ELDEPRYL [Concomitant]
  12. LIPITOR [Concomitant]
  13. ZINC [Concomitant]
  14. ASPIRIN [Concomitant]
  15. L-TYROSINE [Concomitant]
  16. SEROQUEL [Concomitant]
  17. QUININE [Concomitant]
  18. CALCIUM NASAL SPRAY [Concomitant]
  19. CALCIUM TABLETS [Concomitant]

REACTIONS (1)
  - TOOTH LOSS [None]
